FAERS Safety Report 5930985-3 (Version None)
Quarter: 2008Q4

REPORT INFORMATION
  Report Type: 
  Country: None (occurrence: None)
  Receive Date: 20081027
  Receipt Date: 20081022
  Transmission Date: 20090506
  Serious: Yes (Other)
  Sender: FDA-Public Use
  Company Number: US-BAYER-200812606BCC

PATIENT
  Age: 56 Year
  Sex: Female
  Weight: 132 kg

DRUGS (7)
  1. ALEVE [Suspect]
     Indication: ARTHRALGIA
     Route: 048
  2. ASPIRIN [Suspect]
     Indication: ARTHRITIS
     Dosage: AS USED: 325 MG
     Route: 048
  3. ALBUTEROL [Concomitant]
     Route: 055
  4. LASIX [Concomitant]
  5. K-DUR [Concomitant]
  6. HIGH BLOOD PRESSURE MEDICATION [Concomitant]
  7. ASPIRIN [Concomitant]
     Indication: ARTHRALGIA
     Route: 048

REACTIONS (4)
  - ARTHRITIS [None]
  - ASTHMA [None]
  - DYSPNOEA [None]
  - WHEEZING [None]
